FAERS Safety Report 7828738-4 (Version None)
Quarter: 2011Q4

REPORT INFORMATION
  Report Type: 
  Country: None (occurrence: None)
  Receive Date: 20111020
  Receipt Date: 20111017
  Transmission Date: 20120403
  Serious: Yes (Other)
  Sender: FDA-Public Use
  Company Number: JP-PFIZER INC-2011224718

PATIENT
  Age: 75 Year
  Sex: Female

DRUGS (2)
  1. VESANOID [Interacting]
  2. FLUCONAZOLE [Suspect]
     Dosage: UNK

REACTIONS (2)
  - DRUG INTERACTION [None]
  - HYPERCALCAEMIA [None]
